FAERS Safety Report 14584308 (Version 1)
Quarter: 2018Q1

REPORT INFORMATION
  Report Type: Spontaneous
  Country: ES (occurrence: ES)
  Receive Date: 20180228
  Receipt Date: 20180228
  Transmission Date: 20180509
  Serious: Yes (Hospitalization)
  Sender: FDA-Public Use
  Company Number: ES-ROCHE-2076230

PATIENT
  Sex: Male

DRUGS (1)
  1. ERIVEDGE [Suspect]
     Active Substance: VISMODEGIB
     Indication: BASAL CELL NAEVUS SYNDROME
     Route: 065

REACTIONS (4)
  - Paraplegia [Recovering/Resolving]
  - Muscle spasms [Unknown]
  - Blood creatine phosphokinase increased [Unknown]
  - Fasciitis [Unknown]

NARRATIVE: CASE EVENT DATE: 201710
